FAERS Safety Report 18770470 (Version 1)
Quarter: 2021Q1

REPORT INFORMATION
  Report Type: Spontaneous
  Country: TR (occurrence: TR)
  Receive Date: 20210121
  Receipt Date: 20210121
  Transmission Date: 20210419
  Serious: Yes (Other)
  Sender: FDA-Public Use
  Company Number: NVSC2021TR010715

PATIENT
  Age: 28 Year
  Sex: Male

DRUGS (1)
  1. DESFERAL [Suspect]
     Active Substance: DEFEROXAMINE MESYLATE
     Indication: THALASSAEMIA
     Dosage: 500 MG (FORMUALTION: VAIL)
     Route: 065

REACTIONS (6)
  - Renal injury [Unknown]
  - Heart injury [Unknown]
  - Splenic injury [Unknown]
  - Product supply issue [Unknown]
  - Liver injury [Unknown]
  - Iron overload [Unknown]
